FAERS Safety Report 21499344 (Version 3)
Quarter: 2022Q4

REPORT INFORMATION
  Report Type: Spontaneous
  Country: US (occurrence: US)
  Receive Date: 20221024
  Receipt Date: 20221125
  Transmission Date: 20230113
  Serious: Yes (Disabling, Other)
  Sender: FDA-Public Use
  Company Number: US-AMGEN-USASP2022178755

PATIENT
  Sex: Female

DRUGS (1)
  1. PROLIA [Suspect]
     Active Substance: DENOSUMAB
     Indication: Osteoporosis
     Dosage: 60 MILLIGRAM, Q6MO
     Route: 058

REACTIONS (7)
  - Macular degeneration [Unknown]
  - Thoracic vertebral fracture [Recovered/Resolved with Sequelae]
  - Lumbar vertebral fracture [Recovered/Resolved with Sequelae]
  - Pain [Not Recovered/Not Resolved]
  - Body height decreased [Unknown]
  - Limb deformity [Not Recovered/Not Resolved]
  - Sleep disorder due to a general medical condition [Unknown]
